FAERS Safety Report 23332252 (Version 2)
Quarter: 2024Q2

REPORT INFORMATION
  Report Type: Report from Study
  Country: BR (occurrence: None)
  Receive Date: 20231222
  Receipt Date: 20240625
  Transmission Date: 20240716
  Serious: Yes (Other)
  Sender: FDA-Public Use
  Company Number: 2023A287832

PATIENT
  Sex: Female

DRUGS (5)
  1. DAPAGLIFLOZIN [Suspect]
     Active Substance: DAPAGLIFLOZIN
     Indication: Diabetes mellitus
     Dosage: 10 MG DAILY IN THE MORNING WITH WATER
     Route: 048
     Dates: start: 20231115
  2. DAPAGLIFLOZIN [Suspect]
     Active Substance: DAPAGLIFLOZIN
     Route: 048
  3. DAPAGLIFLOZIN [Suspect]
     Active Substance: DAPAGLIFLOZIN
     Route: 048
  4. GLIFAGE [Concomitant]
     Active Substance: METFORMIN HYDROCHLORIDE
     Dosage: A TABLET IN THE MORNING AND A TABLET AT NIGHT
  5. GLICLAZIDE [Concomitant]
     Active Substance: GLICLAZIDE
     Dosage: TWO AT LUNCH DAILY

REACTIONS (5)
  - Glycosylated haemoglobin increased [Unknown]
  - Drug ineffective [Unknown]
  - Muscle atrophy [Unknown]
  - Weight decreased [Not Recovered/Not Resolved]
  - Intentional product misuse [Recovered/Resolved]
